FAERS Safety Report 9365193 (Version 2)
Quarter: 2013Q2

REPORT INFORMATION
  Report Type: Report from Study
  Country: US (occurrence: US)
  Receive Date: 20130624
  Receipt Date: 20130627
  Transmission Date: 20140414
  Serious: Yes (Other)
  Sender: FDA-Public Use
  Company Number: US-BAXTER-2013BAX023411

PATIENT
  Sex: Female
  Weight: 58.64 kg

DRUGS (3)
  1. GAMMAGARD LIQUID [Suspect]
     Indication: IMMUNODEFICIENCY COMMON VARIABLE
     Route: 042
     Dates: start: 2011, end: 2011
  2. GAMMAGARD LIQUID [Suspect]
     Route: 042
     Dates: start: 2011, end: 201305
  3. GAMMAGARD LIQUID [Suspect]
     Route: 042
     Dates: start: 201305

REACTIONS (8)
  - Renal pain [Recovered/Resolved]
  - Blood urine present [Recovered/Resolved]
  - Chills [Recovered/Resolved]
  - Headache [Recovered/Resolved]
  - Nausea [Recovered/Resolved]
  - Tremor [Recovered/Resolved]
  - Feeling abnormal [Recovered/Resolved]
  - Blood pressure increased [Recovered/Resolved]
